FAERS Safety Report 15988004 (Version 3)
Quarter: 2024Q3

REPORT INFORMATION
  Report Type: Report from Study
  Country: US (occurrence: US)
  Receive Date: 20190220
  Receipt Date: 20240911
  Transmission Date: 20241017
  Serious: Yes (Death, Life-Threatening)
  Sender: ABBVIE
  Company Number: US-ABBVIE-19P-163-2672181-00

PATIENT
  Age: 67 Year
  Sex: Female

DRUGS (9)
  1. HUMIRA [Suspect]
     Active Substance: ADALIMUMAB
     Indication: Colitis ulcerative
     Route: 058
     Dates: start: 20131220, end: 20180825
  2. AZULFIDINE [Concomitant]
     Active Substance: SULFASALAZINE
     Indication: Colitis ulcerative
     Route: 048
     Dates: start: 197305, end: 20180825
  3. METOPROLOL SUCCINATE [Concomitant]
     Active Substance: METOPROLOL SUCCINATE
     Indication: Hypertension
     Route: 048
     Dates: start: 2005, end: 20180825
  4. CREON [Concomitant]
     Active Substance: PANCRELIPASE AMYLASE\PANCRELIPASE LIPASE\PANCRELIPASE PROTEASE
     Indication: Dyspepsia
     Dosage: 12,000, 38,000, 60K DOSE
     Route: 048
     Dates: start: 20130325, end: 20180825
  5. VITAMIN D [Concomitant]
     Active Substance: VITAMIN D NOS
     Indication: Vitamin D deficiency
     Route: 048
     Dates: start: 20140926, end: 201505
  6. VITAMIN D [Concomitant]
     Active Substance: VITAMIN D NOS
     Indication: Vitamin D deficiency
     Route: 048
     Dates: start: 20120416, end: 20180825
  7. FOLIC ACID [Concomitant]
     Active Substance: FOLIC ACID
     Indication: Vitamin supplementation
     Route: 048
     Dates: start: 20120416, end: 20180825
  8. PANTOPRAZOLE [Concomitant]
     Active Substance: PANTOPRAZOLE
     Indication: Dyspepsia
     Route: 048
     Dates: start: 20121025, end: 20180825
  9. ENTOCORT [Concomitant]
     Active Substance: BUDESONIDE
     Indication: Colitis ulcerative
     Route: 048
     Dates: start: 20150408, end: 20180825

REACTIONS (1)
  - Death [Fatal]

NARRATIVE: CASE EVENT DATE: 20180825
